FAERS Safety Report 25900375 (Version 2)
Quarter: 2025Q4

REPORT INFORMATION
  Report Type: Spontaneous
  Country: US (occurrence: US)
  Receive Date: 20251009
  Receipt Date: 20251024
  Transmission Date: 20260118
  Serious: Yes (Hospitalization)
  Sender: TEVA
  Company Number: US-TEVA-VS-3378032

PATIENT
  Age: 75 Year
  Sex: Female

DRUGS (3)
  1. TRIAMCINOLONE ACETONIDE [Suspect]
     Active Substance: TRIAMCINOLONE ACETONIDE
     Indication: Greater trochanteric pain syndrome
     Dosage: 1 ML OF 40MG/ML TRIAMCINOLONE
     Route: 014
  2. LIDOCAINE [Concomitant]
     Active Substance: LIDOCAINE
     Indication: Anaesthesia
     Dosage: 5ML OF 10 MG/ML LIDOCAINE
     Route: 014
  3. ROPIVACAINE [Concomitant]
     Active Substance: ROPIVACAINE
     Indication: Anaesthesia
     Dosage: 4ML OF 5 MG/ML ROPIVACAINE
     Route: 014

REACTIONS (3)
  - Osteonecrosis [Unknown]
  - Procedural failure [Recovered/Resolved]
  - Osteonecrosis [Unknown]
